FAERS Safety Report 14168246 (Version 2)
Quarter: 2018Q2

REPORT INFORMATION
  Report Type: Spontaneous
  Country: US (occurrence: US)
  Receive Date: 20171107
  Receipt Date: 20180515
  Transmission Date: 20180711
  Serious: No
  Sender: FDA-Public Use
  Company Number: US-SA-2017SA106319

PATIENT
  Age: 59 Year
  Sex: Male

DRUGS (5)
  1. SOLOSTAR [Concomitant]
     Active Substance: DEVICE
     Indication: TYPE 1 DIABETES MELLITUS
     Dates: start: 201609
  2. NOVOLOG [Suspect]
     Active Substance: INSULIN ASPART
     Route: 065
  3. LANTUS [Concomitant]
     Active Substance: INSULIN GLARGINE
  4. LEVEMIR [Concomitant]
     Active Substance: INSULIN DETEMIR
  5. TOUJEO [Suspect]
     Active Substance: INSULIN GLARGINE
     Indication: TYPE 1 DIABETES MELLITUS
     Dosage: DOSE:23 UNIT(S)
     Route: 058
     Dates: start: 201609

REACTIONS (1)
  - Blood glucose increased [Recovered/Resolved]
